FAERS Safety Report 6970128-0 (Version None)
Quarter: 2010Q3

REPORT INFORMATION
  Report Type: 
  Country: None (occurrence: None)
  Receive Date: 20100823
  Receipt Date: 20100422
  Transmission Date: 20110219
  Serious: No
  Sender: FDA-Public Use
  Company Number: 010561

PATIENT
  Sex: Female
  Weight: 68.1 kg

DRUGS (3)
  1. CIMZIA [Suspect]
     Indication: CROHN'S DISEASE
     Dosage: (400 MG, CIMZIA THERAPY INTERRUPTED SUBCUTANEOUS)
     Route: 058
     Dates: start: 20091201
  2. BALSALAZIDE [Concomitant]
  3. METOPROLOL TARTRATE [Concomitant]

REACTIONS (4)
  - CHILLS [None]
  - COLD SWEAT [None]
  - GASTRIC HYPOMOTILITY [None]
  - GASTROENTERITIS PARACOLON BACILLUS [None]
